FAERS Safety Report 8074414-5 (Version None)
Quarter: 2012Q1

REPORT INFORMATION
  Report Type: 
  Country: None (occurrence: None)
  Receive Date: 20120126
  Receipt Date: 20120119
  Transmission Date: 20120608
  Serious: Yes (Hospitalization)
  Sender: FDA-Public Use
  Company Number: JP-GLAXOSMITHKLINE-B0769995A

PATIENT
  Sex: Female
  Weight: 48 kg

DRUGS (13)
  1. PROMACTA [Suspect]
     Indication: IDIOPATHIC THROMBOCYTOPENIC PURPURA
     Dosage: 12.5MG PER DAY
     Route: 048
     Dates: start: 20110519, end: 20111113
  2. FUROSEMIDE [Concomitant]
     Dosage: 40MG PER DAY
     Route: 048
  3. LANSOPRAZOLE [Concomitant]
     Dosage: 30MG PER DAY
     Route: 048
  4. MUCODYNE [Concomitant]
     Dosage: 1500MG PER DAY
     Route: 048
  5. PREDNISOLONE [Concomitant]
     Indication: IDIOPATHIC THROMBOCYTOPENIC PURPURA
     Dosage: 2.5MG PER DAY
     Route: 048
  6. METILDIGOXIN [Concomitant]
     Dosage: .05MG PER DAY
     Route: 048
  7. PROMACTA [Suspect]
     Route: 048
     Dates: start: 20111114
  8. TRIPAMIDE [Concomitant]
     Dosage: 30MG PER DAY
     Route: 048
  9. LENDORMIN [Concomitant]
     Dosage: .25MG PER DAY
     Route: 048
  10. MUCOSOLVAN [Concomitant]
     Dosage: 45MG PER DAY
     Route: 048
  11. ALDACTONE [Concomitant]
     Dosage: 25MG PER DAY
     Route: 048
  12. CHINESE MEDICINE [Concomitant]
     Dosage: 2.5G PER DAY
     Route: 048
  13. DANAZOL [Concomitant]
     Indication: IDIOPATHIC THROMBOCYTOPENIC PURPURA
     Dosage: 200MG PER DAY
     Route: 048

REACTIONS (2)
  - ARTERIAL OCCLUSIVE DISEASE [None]
  - INTRACARDIAC THROMBUS [None]
